FAERS Safety Report 20153608 (Version 1)
Quarter: 2021Q4

REPORT INFORMATION
  Report Type: Report from Study
  Country: US (occurrence: US)
  Receive Date: 20211206
  Receipt Date: 20211206
  Transmission Date: 20220303
  Serious: No
  Sender: FDA-Public Use
  Company Number: US-NOVARTISTESTPH-NVSC2021US278540

PATIENT
  Age: 75 Year
  Sex: Female

DRUGS (1)
  1. PIQRAY [Suspect]
     Active Substance: ALPELISIB
     Indication: Product used for unknown indication
     Dosage: 200 MG, BID
     Route: 048
     Dates: start: 20211201, end: 20211204

REACTIONS (2)
  - Illness [Unknown]
  - Vomiting [Unknown]

NARRATIVE: CASE EVENT DATE: 20211201
